FAERS Safety Report 19911416 (Version 1)
Quarter: 2021Q4

REPORT INFORMATION
  Report Type: Spontaneous
  Country: US (occurrence: US)
  Receive Date: 20211001
  Receipt Date: 20211001
  Transmission Date: 20220303
  Serious: Yes (Other)
  Sender: FDA-Public Use
  Company Number: None

PATIENT
  Sex: Female

DRUGS (2)
  1. REFRESH SOLUTION NOS [Suspect]
     Active Substance: CARBOXYMETHYLCELLULOSE SODIUM\GLYCERIN
  2. HYPROMELLOSES\NAPHAZOLINE\POLYVINYL ALCOHOL\POVIDONE\TETRAHYDROZOLINE\ [Suspect]
     Active Substance: HYPROMELLOSES\NAPHAZOLINE\POLYVINYL ALCOHOL\POVIDONE\TETRAHYDROZOLINE\ZINC SULFATE

REACTIONS (1)
  - Therapy non-responder [None]
